FAERS Safety Report 12268459 (Version 11)
Quarter: 2019Q2

REPORT INFORMATION
  Report Type: Report from Study
  Country: US (occurrence: US)
  Receive Date: 20160414
  Receipt Date: 20190423
  Transmission Date: 20190711
  Serious: Yes (Hospitalization)
  Sender: FDA-Public Use
  Company Number: US-ACTELION-A-NJ2016-134183

PATIENT
  Age: 47 Year
  Sex: Female

DRUGS (1)
  1. OPSUMIT [Suspect]
     Active Substance: MACITENTAN
     Indication: PULMONARY ARTERIAL HYPERTENSION
     Dosage: 10 MG, QD
     Route: 048

REACTIONS (14)
  - Cardiac disorder [Unknown]
  - Hypertension [Unknown]
  - Treatment noncompliance [Unknown]
  - Asthenia [Unknown]
  - Therapy non-responder [Unknown]
  - Hospitalisation [Unknown]
  - Dyspnoea [Unknown]
  - Muscle spasms [Unknown]
  - Fatigue [Unknown]
  - Limb discomfort [Unknown]
  - Abdominal pain upper [Not Recovered/Not Resolved]
  - Cough [Unknown]
  - Blood pressure fluctuation [Not Recovered/Not Resolved]
  - Fluid retention [Unknown]

NARRATIVE: CASE EVENT DATE: 201401
